FAERS Safety Report 8207420-8 (Version None)
Quarter: 2012Q1

REPORT INFORMATION
  Report Type: 
  Country: None (occurrence: None)
  Receive Date: 20120312
  Receipt Date: 20120227
  Transmission Date: 20120608
  Serious: Yes (Hospitalization, Other)
  Sender: FDA-Public Use
  Company Number: NSR_00505_2012

PATIENT
  Age: 69 Year
  Sex: Female

DRUGS (2)
  1. LOW-CEILING DIURETICS, THIAZIDES [Concomitant]
  2. ALLOPURINOL [Suspect]
     Indication: HYPERURICAEMIA
     Dosage: 300 MG QD

REACTIONS (7)
  - HYPERTENSION [None]
  - ALOPECIA [None]
  - TRANSAMINASES INCREASED [None]
  - DRUG RASH WITH EOSINOPHILIA AND SYSTEMIC SYMPTOMS [None]
  - ONYCHOLYSIS [None]
  - LIVER INJURY [None]
  - RENAL FAILURE [None]
